FAERS Safety Report 15723714 (Version 1)
Quarter: 2018Q4

REPORT INFORMATION
  Report Type: Spontaneous
  Country: US (occurrence: US)
  Receive Date: 20181214
  Receipt Date: 20181214
  Transmission Date: 20190205
  Serious: Yes (Other)
  Sender: FDA-Public Use
  Company Number: US-FRESENIUS KABI-FK201812657

PATIENT
  Age: 13 Year
  Sex: Female

DRUGS (5)
  1. VINCRISTINE [Suspect]
     Active Substance: VINCRISTINE
     Indication: EWING^S SARCOMA
     Route: 065
  2. DOXORUBICIN (MANUFACTURER UNKNOWN) [Suspect]
     Active Substance: DOXORUBICIN
     Indication: EWING^S SARCOMA
     Route: 065
  3. IFOSFAMIDE (MANUFACTURER UNKNOWN) [Suspect]
     Active Substance: IFOSFAMIDE
     Indication: EWING^S SARCOMA
     Route: 065
  4. ACTINOMYCIN D [Suspect]
     Active Substance: DACTINOMYCIN
     Indication: EWING^S SARCOMA
     Route: 065
  5. ETOPOSIDE (MANUFACTURER UNKNOWN) [Suspect]
     Active Substance: ETOPOSIDE
     Indication: EWING^S SARCOMA
     Route: 065

REACTIONS (3)
  - Ovarian failure [Not Recovered/Not Resolved]
  - Uterine injury [Not Recovered/Not Resolved]
  - Amenorrhoea [Not Recovered/Not Resolved]
